FAERS Safety Report 17657556 (Version 1)
Quarter: 2020Q2

REPORT INFORMATION
  Report Type: Spontaneous
  Country: CA (occurrence: CA)
  Receive Date: 20200410
  Receipt Date: 20200410
  Transmission Date: 20200713
  Serious: Yes (Hospitalization)
  Sender: FDA-Public Use
  Company Number: CA-TEVA-2020-CA-1220741

PATIENT
  Age: 81 Year
  Sex: Female
  Weight: 90 kg

DRUGS (7)
  1. CONJUGATED ESTROGENS [Concomitant]
     Active Substance: ESTROGENS, CONJUGATED
  2. ESOMEPRAZOLE. [Concomitant]
     Active Substance: ESOMEPRAZOLE MAGNESIUM
  3. PRAVASTATIN SODIUM. [Concomitant]
     Active Substance: PRAVASTATIN SODIUM
  4. LEVOTHYROXINE. [Concomitant]
     Active Substance: LEVOTHYROXINE
  5. FUROSEMIDE. [Concomitant]
     Active Substance: FUROSEMIDE
  6. CLOPIDOGREL [Concomitant]
     Active Substance: CLOPIDOGREL BISULFATE
  7. RAMIPRIL. [Suspect]
     Active Substance: RAMIPRIL
     Indication: SYNCOPE
     Route: 048

REACTIONS (2)
  - Aphasia [Unknown]
  - Swollen tongue [Unknown]
